FAERS Safety Report 4465751-1 (Version None)
Quarter: 2004Q3

REPORT INFORMATION
  Report Type: 
  Country: None (occurrence: None)
  Receive Date: 20040929
  Receipt Date: 20040929
  Transmission Date: 20050211
  Serious: Yes (Other)
  Sender: FDA-Public Use
  Company Number: None

PATIENT
  Sex: Female
  Weight: 55.3388 kg

DRUGS (4)
  1. AREDIA [Suspect]
     Indication: MULTIPLE MYELOMA
  2. AREDIA [Suspect]
     Indication: OSTEOPOROSIS
  3. ZOMETA [Suspect]
     Indication: MULTIPLE MYELOMA
  4. ZOMETA [Suspect]
     Indication: OSTEOPOROSIS

REACTIONS (5)
  - BONE DISORDER [None]
  - GINGIVAL DISORDER [None]
  - POST PROCEDURAL COMPLICATION [None]
  - POST PROCEDURAL FISTULA [None]
  - TOOTH DISORDER [None]
